FAERS Safety Report 11268980 (Version 1)
Quarter: 2015Q3

REPORT INFORMATION
  Report Type: Spontaneous
  Country: US (occurrence: US)
  Receive Date: 20150714
  Receipt Date: 20150714
  Transmission Date: 20151125
  Serious: No
  Sender: FDA-Public Use
  Company Number: PHEH2014US014458

PATIENT
  Sex: Female

DRUGS (3)
  1. DIOVAN [Suspect]
     Active Substance: VALSARTAN
     Dosage: 40 MG, UNK
  2. DIOVAN [Suspect]
     Active Substance: VALSARTAN
     Dosage: 40 MG, BID
     Dates: start: 201401
  3. TOPROL XL [Concomitant]
     Active Substance: METOPROLOL SUCCINATE
     Dosage: UNK UKN, UNK

REACTIONS (4)
  - Back pain [Unknown]
  - Pain in extremity [Unknown]
  - Myalgia [Unknown]
  - Pain [Unknown]
